FAERS Safety Report 7354499-1 (Version None)
Quarter: 2011Q1

REPORT INFORMATION
  Report Type: 
  Country: None (occurrence: None)
  Receive Date: 20110316
  Receipt Date: 20110308
  Transmission Date: 20110831
  Serious: Yes (Death, Hospitalization)
  Sender: FDA-Public Use
  Company Number: DE-JNJFOC-990308-003010975

PATIENT
  Sex: Female

DRUGS (12)
  1. TRAMADOL HCL [Suspect]
     Dosage: 200 MG ONCE A DAY
     Route: 048
     Dates: start: 19981111, end: 19981112
  2. PREDNISOLONE [Concomitant]
     Route: 048
  3. FUROSEMIDE [Concomitant]
     Route: 048
  4. TRAMADOL HCL [Suspect]
     Indication: ANKLE FRACTURE
     Dosage: 300 MG ONCE A DAY
     Route: 048
     Dates: start: 19981113, end: 19981116
  5. TRAMADOL HCL [Suspect]
     Dosage: 200 MG ONCE A DAY
     Route: 048
     Dates: start: 19981111, end: 19981112
  6. POTASSIUM CHLORIDE [Concomitant]
     Route: 048
  7. OMEPRAZOLE [Concomitant]
     Route: 048
  8. CITALOPRAM HYDROBROMIDE [Interacting]
     Indication: PRODUCT USED FOR UNKNOWN INDICATION
     Route: 048
  9. PARACETAMOL [Concomitant]
     Route: 048
  10. TRAMADOL HCL [Suspect]
     Indication: CLAVICLE FRACTURE
     Dosage: 300 MG ONCE A DAY
     Route: 048
     Dates: start: 19981113, end: 19981116
  11. METHENAMINE HIPPURATE [Concomitant]
     Route: 048
  12. MESALAZINE [Concomitant]
     Route: 048

REACTIONS (6)
  - LEUKOCYTOSIS [None]
  - MYOCARDIAL INFARCTION [None]
  - ARTERIOSCLEROSIS [None]
  - CEREBRAL INFARCTION [None]
  - DRUG INTERACTION [None]
  - CONVULSION [None]
